FAERS Safety Report 5856369-4 (Version None)
Quarter: 2008Q3

REPORT INFORMATION
  Report Type: 
  Country: None (occurrence: None)
  Receive Date: 20080822
  Receipt Date: 20080822
  Transmission Date: 20090109
  Serious: Yes (Life-Threatening, Hospitalization, Other)
  Sender: FDA-Public Use
  Company Number: None

PATIENT
  Age: 49 Year
  Sex: Female

DRUGS (16)
  1. GAMMAGARD [Suspect]
     Indication: CEREBELLAR ATAXIA
     Dosage: 50 GRAMS Q 24 HOURS IV
     Route: 042
     Dates: start: 20080621, end: 20080722
  2. GAMMAGARD [Suspect]
  3. ACYCLOVIR [Concomitant]
  4. AMPICILLIN [Concomitant]
  5. RECEPHIN IV [Concomitant]
  6. VANCOMYCIN [Concomitant]
  7. PREDNISONE TAB [Concomitant]
  8. RANITIDINE [Concomitant]
  9. ADVAIR DISKUS 100/50 [Concomitant]
  10. ALLEGRA [Concomitant]
  11. AMINOPYRIDINE [Concomitant]
  12. OMEPRAZOLE [Concomitant]
  13. DIAZEPAM [Concomitant]
  14. FLONASE [Concomitant]
  15. TRAZODONE HCL [Concomitant]
  16. MULTIPLE VITAMIN [Concomitant]

REACTIONS (1)
  - MENINGITIS [None]
